APPROVED DRUG PRODUCT: PHOSLYRA
Active Ingredient: CALCIUM ACETATE
Strength: 667MG/5ML
Dosage Form/Route: SOLUTION;ORAL
Application: N022581 | Product #001
Applicant: FRESENIUS MEDICAL CARE RENAL THERAPIES GROUP LLC
Approved: Apr 18, 2011 | RLD: Yes | RS: No | Type: DISCN

PATENTS:
Patent 8592480 | Expires: Jul 20, 2027
Patent 9089528 | Expires: Jul 20, 2027
Patent 8591938 | Expires: Feb 23, 2030